FAERS Safety Report 22281502 (Version 1)
Quarter: 2023Q2

REPORT INFORMATION
  Report Type: Report from Study
  Country: US (occurrence: US)
  Receive Date: 20230504
  Receipt Date: 20230504
  Transmission Date: 20230722
  Serious: Yes (Other)
  Sender: FDA-Public Use
  Company Number: US-JNJFOC-20230445986

PATIENT
  Age: 58 Year
  Sex: Male

DRUGS (1)
  1. MACITENTAN [Suspect]
     Active Substance: MACITENTAN
     Indication: Pulmonary arterial hypertension
     Route: 048
     Dates: start: 20230413, end: 20230420

REACTIONS (6)
  - Cerebrovascular accident [Recovered/Resolved]
  - Mental impairment [Not Recovered/Not Resolved]
  - Brain fog [Recovering/Resolving]
  - Headache [Recovering/Resolving]
  - Vertigo [Recovered/Resolved]
  - Memory impairment [Not Recovered/Not Resolved]

NARRATIVE: CASE EVENT DATE: 20230414
